FAERS Safety Report 4709279-X (Version None)
Quarter: 2005Q3

REPORT INFORMATION
  Report Type: 
  Country: None (occurrence: None)
  Receive Date: 20050708
  Receipt Date: 20040714
  Transmission Date: 20060218
  Serious: Yes (Other)
  Sender: FDA-Public Use
  Company Number: 2004PK01502

PATIENT
  Age: 992 Month
  Sex: Female
  Weight: 63 kg

DRUGS (10)
  1. FASLODEX [Suspect]
     Indication: BREAST CANCER
     Route: 058
     Dates: start: 20040405
  2. FASLODEX [Suspect]
     Route: 058
     Dates: start: 20040503
  3. FASLODEX [Suspect]
     Route: 058
     Dates: start: 20040601
  4. FASLODEX [Suspect]
     Route: 058
     Dates: start: 20040628
  5. TAMOXIFEN [Concomitant]
     Dates: start: 20001201, end: 20030801
  6. LETROZOL [Concomitant]
     Dates: start: 20030801, end: 20031101
  7. PACLITAXEL [Concomitant]
     Dates: start: 20031101, end: 20040301
  8. BROMAZANIL [Concomitant]
  9. BZ TABLETS [Concomitant]
  10. L-THYROXINE [Concomitant]

REACTIONS (4)
  - FATIGUE [None]
  - HEPATITIS TOXIC [None]
  - VOMITING [None]
  - WEIGHT DECREASED [None]
